FAERS Safety Report 8177578-8 (Version None)
Quarter: 2012Q1

REPORT INFORMATION
  Report Type: 
  Country: None (occurrence: None)
  Receive Date: 20120301
  Receipt Date: 20120217
  Transmission Date: 20120608
  Serious: Yes (Hospitalization, Other)
  Sender: FDA-Public Use
  Company Number: PHEH2011US03398

PATIENT
  Sex: Male

DRUGS (10)
  1. ASPIRIN [Concomitant]
     Dosage: 81 MG, QD
     Route: 048
     Dates: start: 20111018
  2. METAMUCIL-2 [Concomitant]
     Dosage: 0.52 G, UNK
  3. LORAZEPAM [Concomitant]
     Dosage: 0.5 MG, UNK
  4. WARFARIN SODIUM [Concomitant]
     Dosage: 4 MG, UNK
  5. DIGOXIN [Concomitant]
     Dosage: 125 UG, QD
     Route: 048
     Dates: start: 20111018
  6. GLEEVEC [Suspect]
     Indication: GASTROINTESTINAL STROMAL TUMOUR
     Dosage: 200 MG, BID
     Route: 048
     Dates: start: 20101119
  7. FUROSEMIDE [Concomitant]
     Dosage: 20 MG, QD
     Route: 048
     Dates: start: 20111018
  8. LUNESTA [Concomitant]
     Dosage: 5 MG, UNK
  9. AMOXICILLIN [Concomitant]
     Dosage: 1 DF, QD
     Route: 048
     Dates: start: 20111018
  10. FISH OIL [Concomitant]
     Dosage: 1200 UG-144 MG, UNK
     Route: 048
     Dates: start: 20111101

REACTIONS (11)
  - NAUSEA [None]
  - DIARRHOEA [None]
  - CONTUSION [None]
  - DECREASED APPETITE [None]
  - OEDEMA PERIPHERAL [None]
  - CLOSTRIDIAL INFECTION [None]
  - JOINT SWELLING [None]
  - VOMITING [None]
  - WEIGHT DECREASED [None]
  - BLOOD LACTATE DEHYDROGENASE INCREASED [None]
  - RASH MACULAR [None]
